FAERS Safety Report 8484506-4 (Version None)
Quarter: 2012Q3

REPORT INFORMATION
  Report Type: 
  Country: None (occurrence: None)
  Receive Date: 20120703
  Receipt Date: 20120625
  Transmission Date: 20120928
  Serious: Yes (Hospitalization)
  Sender: FDA-Public Use
  Company Number: US-MYLANLABS-2012S1009927

PATIENT
  Age: 59 Year
  Sex: Male

DRUGS (11)
  1. EMSAM [Suspect]
     Indication: DEPRESSION
     Dosage: QD
     Route: 062
     Dates: start: 20111126, end: 20120407
  2. METFORMIN HCL [Concomitant]
     Indication: DIABETES MELLITUS
     Route: 048
     Dates: start: 20100101
  3. PERCOCET [Concomitant]
     Indication: ABDOMINAL PAIN UPPER
     Route: 048
     Dates: start: 20120401
  4. ANDROGEL [Concomitant]
     Indication: BLOOD TESTOSTERONE DECREASED
     Dosage: FOUR PUMPS
     Route: 048
     Dates: start: 20100101
  5. XANAX [Concomitant]
  6. EMSAM [Suspect]
     Dosage: QD
     Route: 062
     Dates: start: 20120408, end: 20120518
  7. ASPIRIN [Concomitant]
  8. CRESTOR [Concomitant]
     Indication: BLOOD CHOLESTEROL
     Route: 048
     Dates: start: 20030101
  9. SYNTHROID [Concomitant]
     Indication: THYROIDECTOMY
     Route: 048
  10. AMBIEN [Concomitant]
     Indication: INSOMNIA
     Route: 048
  11. VITAMIN D [Concomitant]

REACTIONS (13)
  - ABDOMINAL PAIN UPPER [None]
  - DRY MOUTH [None]
  - BURNING MOUTH SYNDROME [None]
  - TOOTHACHE [None]
  - DIPLOPIA [None]
  - WEIGHT DECREASED [None]
  - FACIAL PAIN [None]
  - SALIVARY HYPERSECRETION [None]
  - HEADACHE [None]
  - CHOLECYSTECTOMY [None]
  - ORAL DISCOMFORT [None]
  - RHINALGIA [None]
  - HYPOAESTHESIA [None]
